FAERS Safety Report 4616733-8 (Version None)
Quarter: 2005Q2

REPORT INFORMATION
  Report Type: 
  Country: None (occurrence: None)
  Receive Date: 20050311
  Receipt Date: 20041228
  Transmission Date: 20051028
  Serious: No
  Sender: FDA-Public Use
  Company Number: M04-341-137

PATIENT
  Age: 72 Year
  Sex: Male

DRUGS (9)
  1. VELCADE [Suspect]
     Indication: MULTIPLE MYELOMA
     Dosage: 2.60 MG, INTRAVENOUS
     Route: 042
     Dates: start: 20040308, end: 20040427
  2. LANSOPRAZOLE [Concomitant]
  3. VITAMIN E [Concomitant]
  4. ZOMETA [Concomitant]
  5. SAW PALMETTO [Concomitant]
  6. MULTI-VITAMINS [Concomitant]
  7. ZANTAC [Concomitant]
  8. ACETYL SALICYLIC ACID USP BAT [Concomitant]
  9. MINERAL SUPPLEMENTS [Concomitant]

REACTIONS (2)
  - DRUG HYPERSENSITIVITY [None]
  - RASH [None]
